FAERS Safety Report 26149334 (Version 2)
Quarter: 2025Q4

REPORT INFORMATION
  Report Type: Spontaneous
  Country: EU (occurrence: EU)
  Receive Date: 20251212
  Receipt Date: 20251216
  Transmission Date: 20260118
  Serious: Yes (Hospitalization, Other)
  Sender: AUROBINDO
  Company Number: EU-KRKA-LT2025K21185LIT

PATIENT
  Age: 38 Year
  Sex: Female

DRUGS (9)
  1. OLANZAPINE [Suspect]
     Active Substance: OLANZAPINE
     Indication: Acute psychosis
     Dosage: 10 MILLIGRAM, ONCE A DAY (DOSE INCREASED TO 10 MG PER DAY)
     Route: 061
  2. OLANZAPINE [Suspect]
     Active Substance: OLANZAPINE
     Indication: Depression
  3. DIAZEPAM [Suspect]
     Active Substance: DIAZEPAM
     Indication: Acute psychosis
     Dosage: 10 MILLIGRAM, ONCE A DAY (10 MG/2 ML PER DAY)
     Route: 065
  4. DIAZEPAM [Suspect]
     Active Substance: DIAZEPAM
     Indication: Depression
     Dosage: 30 MILLIGRAM (30 MG/6 ML)
     Route: 065
  5. ARIPIPRAZOLE [Suspect]
     Active Substance: ARIPIPRAZOLE
     Indication: Acute psychosis
     Dosage: 15 MILLIGRAM
     Route: 065
  6. SERTRALINE [Suspect]
     Active Substance: SERTRALINE HYDROCHLORIDE
     Indication: Depression
     Dosage: 100 MILLIGRAM, ONCE A DAY (UP TO 100 MG PER DAY)
     Route: 065
  7. SERTRALINE [Suspect]
     Active Substance: SERTRALINE HYDROCHLORIDE
     Indication: Acute psychosis
  8. HALOPERIDOL [Suspect]
     Active Substance: HALOPERIDOL
     Indication: Acute psychosis
     Dosage: 10 MILLIGRAM, ONCE A DAY (UP TO 10 MG/2 ML PER DAY)
     Route: 065
  9. HALOPERIDOL [Suspect]
     Active Substance: HALOPERIDOL
     Indication: Depression
     Dosage: 15 MILLIGRAM (15 MG/3 ML)
     Route: 065

REACTIONS (12)
  - Psychotic disorder [Recovering/Resolving]
  - Hallucination, visual [Recovering/Resolving]
  - Hallucination, auditory [Recovering/Resolving]
  - Condition aggravated [Recovering/Resolving]
  - Irritability [Recovering/Resolving]
  - Hostility [Recovering/Resolving]
  - Psychomotor hyperactivity [Recovering/Resolving]
  - Delusional disorder, mixed type [Recovering/Resolving]
  - Hypertension [Recovered/Resolved]
  - Drug ineffective [Recovering/Resolving]
  - Acute psychosis [Recovering/Resolving]
  - Refusal of treatment by patient [Unknown]
